FAERS Safety Report 7902753-4 (Version None)
Quarter: 2011Q4

REPORT INFORMATION
  Report Type: 
  Country: None (occurrence: None)
  Receive Date: 20111109
  Receipt Date: 20111102
  Transmission Date: 20120403
  Serious: Yes (Hospitalization)
  Sender: FDA-Public Use
  Company Number: US-BIOGENIDEC-2011BI039641

PATIENT
  Age: 49 Year
  Sex: Male

DRUGS (5)
  1. TYSABRI [Suspect]
     Indication: MULTIPLE SCLEROSIS
     Route: 042
     Dates: start: 20110628, end: 20111010
  2. NUVIGIL [Concomitant]
     Indication: FATIGUE
  3. LIPITOR [Concomitant]
     Indication: BLOOD CHOLESTEROL
  4. METFORMIN HCL [Concomitant]
     Indication: DIABETES MELLITUS
  5. SYNTHROID [Concomitant]
     Indication: HYPOTHYROIDISM

REACTIONS (1)
  - CORONARY ARTERY DISEASE [None]
